FAERS Safety Report 8914140 (Version 3)
Quarter: 2013Q2

REPORT INFORMATION
  Report Type: Spontaneous
  Country: US (occurrence: US)
  Receive Date: 20121119
  Receipt Date: 20130523
  Transmission Date: 20140414
  Serious: Yes (Hospitalization, Disabling)
  Sender: FDA-Public Use
  Company Number: US-BAYER-2012-117959

PATIENT
  Age: 45 Year
  Sex: Female
  Weight: 90.7 kg

DRUGS (9)
  1. GIANVI [Suspect]
     Dosage: UNK
     Dates: start: 20120415, end: 20120509
  2. BEYAZ [Suspect]
     Dosage: UNK
     Dates: start: 20120219, end: 20120414
  3. YAZ [Suspect]
  4. ULTRAM [Concomitant]
     Indication: PAIN
  5. ALCLOMETASONE DIPROPIONATE [Concomitant]
  6. CLARINEX [DESLORATADINE] [Concomitant]
  7. DESONIDE [Concomitant]
  8. FLUOCINOLONE ACETONIDE [Concomitant]
  9. TRAMADOL [Concomitant]
     Indication: PAIN

REACTIONS (5)
  - Pulmonary embolism [None]
  - Pain [None]
  - Injury [None]
  - Anxiety [None]
  - Pain [None]
